FAERS Safety Report 25389825 (Version 1)
Quarter: 2025Q2

REPORT INFORMATION
  Report Type: Report from Study
  Country: BE (occurrence: BE)
  Receive Date: 20250603
  Receipt Date: 20250603
  Transmission Date: 20250716
  Serious: Yes (Other)
  Sender: TEVA
  Company Number: BE-TEVA-VS-3336181

PATIENT
  Age: 49 Year
  Sex: Female

DRUGS (1)
  1. COPAXONE [Suspect]
     Active Substance: GLATIRAMER ACETATE
     Indication: Multiple sclerosis
     Route: 065
     Dates: start: 20250304, end: 20250526

REACTIONS (8)
  - Malaise [Recovered/Resolved]
  - Pain in extremity [Unknown]
  - Vomiting [Unknown]
  - Abdominal pain lower [Unknown]
  - Renal pain [Unknown]
  - Arthralgia [Unknown]
  - Paraesthesia [Unknown]
  - Chest pain [Unknown]

NARRATIVE: CASE EVENT DATE: 20250512
